FAERS Safety Report 18504485 (Version 1)
Quarter: 2020Q4

REPORT INFORMATION
  Report Type: Spontaneous
  Country: IN (occurrence: IN)
  Receive Date: 20201114
  Receipt Date: 20201114
  Transmission Date: 20210114
  Serious: Yes (Hospitalization)
  Sender: FDA-Public Use
  Company Number: NVSC2020IN301982

PATIENT
  Sex: Female

DRUGS (1)
  1. KRYXANA [Suspect]
     Active Substance: RIBOCICLIB
     Indication: HER2 NEGATIVE BREAST CANCER
     Dosage: UNK UNK, QD
     Route: 048

REACTIONS (2)
  - Traumatic lung injury [Unknown]
  - Oxygen saturation decreased [Unknown]
